FAERS Safety Report 5583550-4 (Version None)
Quarter: 2008Q1

REPORT INFORMATION
  Report Type: 
  Country: None (occurrence: None)
  Receive Date: 20080107
  Receipt Date: 20080102
  Transmission Date: 20080703
  Serious: Yes (Other)
  Sender: FDA-Public Use
  Company Number: IT-ABBOTT-08P-083-0431940-00

PATIENT
  Age: 59 Year

DRUGS (1)
  1. ADALIMUMAB [Suspect]
     Indication: PSORIATIC ARTHROPATHY

REACTIONS (1)
  - ENCEPHALITIS [None]
